FAERS Safety Report 9292272 (Version 3)
Quarter: 2013Q2

REPORT INFORMATION
  Report Type: Spontaneous
  Country: CN (occurrence: CN)
  Receive Date: 20130516
  Receipt Date: 20130628
  Transmission Date: 20140414
  Serious: Yes (Hospitalization)
  Sender: FDA-Public Use
  Company Number: CN-NOVOPROD-377517

PATIENT
  Age: 50 Year
  Sex: Female
  Weight: 55 kg

DRUGS (4)
  1. NOVOMIX 30 PENFILL [Suspect]
     Indication: TYPE 2 DIABETES MELLITUS
     Dosage: UNK
     Route: 058
  2. NOVOMIX 30 PENFILL [Suspect]
     Dosage: 32 U, QD
     Route: 058
     Dates: start: 20130416
  3. NOVOMIX 30 PENFILL [Suspect]
     Dosage: 32 U, QD
     Route: 058
  4. NOVOMIX 30 PENFILL [Suspect]
     Dosage: 18 U, QD (10 U IN THE MORNING, 8 U IN THE EVENING)
     Route: 058

REACTIONS (3)
  - Suspected counterfeit product [Unknown]
  - Retinal haemorrhage [Not Recovered/Not Resolved]
  - Blood glucose increased [Recovered/Resolved]
